FAERS Safety Report 18177587 (Version 4)
Quarter: 2020Q3

REPORT INFORMATION
  Report Type: Report from Study
  Country: US (occurrence: US)
  Receive Date: 20200820
  Receipt Date: 20200910
  Transmission Date: 20201103
  Serious: No
  Sender: FDA-Public Use
  Company Number: NVSC2020US225519

PATIENT
  Sex: Female

DRUGS (1)
  1. MEKINIST [Suspect]
     Active Substance: TRAMETINIB DIMETHYL SULFOXIDE
     Indication: PRODUCT USED FOR UNKNOWN INDICATION
     Dosage: 2 MG, QD
     Route: 065
     Dates: start: 20200730, end: 20200814

REACTIONS (6)
  - Rash [Unknown]
  - Abdominal pain upper [Unknown]
  - Acne [Unknown]
  - Abdominal pain [Unknown]
  - Diarrhoea [Unknown]
  - Blood pressure increased [Unknown]
